FAERS Safety Report 7655618-X (Version None)
Quarter: 2011Q3

REPORT INFORMATION
  Report Type: 
  Country: None (occurrence: None)
  Receive Date: 20110804
  Receipt Date: 20110803
  Transmission Date: 20111222
  Serious: Yes (Life-Threatening)
  Sender: FDA-Public Use
  Company Number: DE-B.I. PHARMACEUTICALS,INC./RIDGEFIELD-2011-DE-04237DE

PATIENT
  Sex: Male
  Weight: 67.6 kg

DRUGS (7)
  1. NORVASC [Concomitant]
     Indication: CARDIAC FAILURE
     Dosage: DAILY DOSE: 1X1
     Dates: start: 20110216
  2. ASPIRIN [Concomitant]
     Indication: MYOCARDIAL ISCHAEMIA
     Dosage: DAILY DOSE: 2X1
     Dates: start: 20080819
  3. TIOTROPIUM BROMIDE [Suspect]
     Indication: CHRONIC OBSTRUCTIVE PULMONARY DISEASE
     Dosage: 5 MCG
     Route: 055
     Dates: start: 20100710, end: 20110620
  4. METOPROLOL TARTRATE [Concomitant]
     Indication: HYPERTENSION
     Dosage: DAILY DOSE: 2X1
     Dates: start: 20050101
  5. RAMIPRIL [Concomitant]
     Indication: HYPERTENSION
     Dosage: 5 MG
     Dates: start: 20050101
  6. MARCUMAR [Concomitant]
     Indication: HEART VALVE REPLACEMENT
     Dosage: DAILY DOSE: 1/2
     Dates: start: 20050101
  7. SS-ACETYLDIGOXIN [Concomitant]
     Indication: TACHYCARDIA
     Dosage: STRENGTH: 0.2 NR, DAILY DOSE: 2X1
     Dates: start: 20050101

REACTIONS (1)
  - MYOCARDIAL INFARCTION [None]
